FAERS Safety Report 9773031 (Version 1)
Quarter: 2013Q4

REPORT INFORMATION
  Report Type: Spontaneous
  Country: US (occurrence: US)
  Receive Date: 20131219
  Receipt Date: 20131219
  Transmission Date: 20140711
  Serious: Yes (Other)
  Sender: FDA-Public Use
  Company Number: US-ROXANE LABORATORIES, INC.-2013-RO-01966RO

PATIENT
  Age: 24 Year
  Sex: Female

DRUGS (3)
  1. DEXAMETHASONE [Suspect]
     Indication: ADRENOGENITAL SYNDROME
  2. CONTRACEPTIVES [Suspect]
     Indication: ADRENOGENITAL SYNDROME
     Route: 048
  3. FLUOXETINE [Suspect]
     Indication: OBSESSIVE-COMPULSIVE DISORDER

REACTIONS (2)
  - Non-alcoholic steatohepatitis [Unknown]
  - Obsessive-compulsive disorder [Unknown]
